FAERS Safety Report 24565111 (Version 1)
Quarter: 2024Q4

REPORT INFORMATION
  Report Type: Report from Study
  Country: IN (occurrence: IN)
  Receive Date: 20241030
  Receipt Date: 20241030
  Transmission Date: 20250114
  Serious: Yes (Death, Hospitalization, Other)
  Sender: CIPLA
  Company Number: IN-CIPLA LTD.-2024IN12127

PATIENT

DRUGS (8)
  1. SPIRONOLACTONE\TORSEMIDE [Suspect]
     Active Substance: SPIRONOLACTONE\TORSEMIDE
     Indication: Product used for unknown indication
     Dosage: UNK, 20 (UNITS UNSPECIFIED)
     Route: 048
  2. METOPROLOL SUCCINATE [Suspect]
     Active Substance: METOPROLOL SUCCINATE
     Indication: Product used for unknown indication
     Dosage: UNK, 25 (UNITS UNSPECIFIED)
     Route: 048
  3. TICAFLO [Concomitant]
     Indication: Product used for unknown indication
     Dosage: UNK
     Route: 065
  4. ASPIRIN [Concomitant]
     Active Substance: ASPIRIN
     Indication: Product used for unknown indication
     Dosage: UNK, 75 (UNITS UNSPECIFIED)
     Route: 065
  5. AVAS [Concomitant]
     Indication: Product used for unknown indication
     Dosage: UNK, 40 (UNITS UNSPECIFIED)
     Route: 065
  6. ANGIPLAT [Concomitant]
     Indication: Product used for unknown indication
     Dosage: UNK, 2.5 (UNITS UNSPECIFIED)
     Route: 065
  7. CLONAFIT [Concomitant]
     Indication: Product used for unknown indication
     Dosage: UNK
     Route: 065
  8. RAMCOR [Concomitant]
     Indication: Product used for unknown indication
     Dosage: UNK, 2.5 (UNITS UNSPECIFIED)
     Route: 065

REACTIONS (3)
  - Myocardial infarction [Fatal]
  - Coronary artery disease [Unknown]
  - Malaise [Unknown]

NARRATIVE: CASE EVENT DATE: 20240401
